FAERS Safety Report 17346238 (Version 1)
Quarter: 2020Q1

REPORT INFORMATION
  Report Type: Spontaneous
  Country: IT (occurrence: IT)
  Receive Date: 20200129
  Receipt Date: 20200129
  Transmission Date: 20200409
  Serious: Yes (Hospitalization, Other)
  Sender: FDA-Public Use
  Company Number: IT-AMGEN-ITASP2020012283

PATIENT

DRUGS (11)
  1. PEGFILGRASTIM [Suspect]
     Active Substance: PEGFILGRASTIM
     Indication: NEUTROPHIL COUNT DECREASED
     Dosage: 6 MILLIGRAM
     Route: 058
  2. ETOPOSIDE. [Concomitant]
     Active Substance: ETOPOSIDE
     Indication: HAEMATOLOGICAL MALIGNANCY
     Dosage: 200 MILLIGRAM/SQ. METER
  3. CIPROFLOXACIN. [Concomitant]
     Active Substance: CIPROFLOXACIN
     Indication: ANTIBIOTIC PROPHYLAXIS
     Dosage: 500 MILLIGRAM, Q12H
     Route: 048
  4. AMPHOTERICIN B. [Concomitant]
     Active Substance: AMPHOTERICIN B
     Indication: ANTIBIOTIC PROPHYLAXIS
     Dosage: UNK, LATER 0.5-1.0, MILLIGRAM/KILOGRAM, QD
     Route: 048
  5. ACYCLOVIR [ACICLOVIR] [Concomitant]
     Active Substance: ACYCLOVIR
     Indication: ANTIBIOTIC PROPHYLAXIS
     Dosage: 500 MILLIGRAM/SQ. METER
  6. BUSULFAN. [Concomitant]
     Active Substance: BUSULFAN
     Indication: HAEMATOLOGICAL MALIGNANCY
     Dosage: 4 MILLIGRAM/KILOGRAM
  7. ARACYTIN [Concomitant]
     Active Substance: CYTARABINE
     Indication: HAEMATOLOGICAL MALIGNANCY
     Dosage: 200 MILLIGRAM/SQ. METER
  8. MELPHALAN. [Concomitant]
     Active Substance: MELPHALAN
     Indication: HAEMATOLOGICAL MALIGNANCY
     Dosage: 90 MILLIGRAM/SQ. METER, 140 MILLIGRAM/SQ. METER, 100 MILLIGRAM/SQ. METER
  9. BICNU [Concomitant]
     Active Substance: CARMUSTINE
     Indication: HAEMATOLOGICAL MALIGNANCY
     Dosage: 300 MILLIGRAM/SQ. METER
  10. TRIMETHOPRIM SULFAMETHOXAZOLE [Concomitant]
     Active Substance: SULFAMETHOXAZOLE\TRIMETHOPRIM
     Indication: ANTIBIOTIC PROPHYLAXIS
     Dosage: 1 DOSAGE FORM, Q12H
  11. AMPHOTERICIN B. [Concomitant]
     Active Substance: AMPHOTERICIN B
     Indication: PYREXIA

REACTIONS (4)
  - Febrile neutropenia [Unknown]
  - Unevaluable event [Unknown]
  - Sepsis [Unknown]
  - Pyrexia [Unknown]
